FAERS Safety Report 10934144 (Version 2)
Quarter: 2015Q1

REPORT INFORMATION
  Report Type: Not Available
  Country: FR (occurrence: FR)
  Receive Date: 20150320
  Receipt Date: 20150327
  Transmission Date: 20150721
  Serious: Yes (Life-Threatening, Hospitalization)
  Sender: FDA-Public Use
  Company Number: FR-MUNDIPHARMA DS AND PHARMACOVIGILANCE-GBR-2015-0026330

PATIENT
  Age: 53 Year
  Sex: Male

DRUGS (11)
  1. DEROXAT [Concomitant]
     Active Substance: PAROXETINE HYDROCHLORIDE
  2. EZETROL [Concomitant]
     Active Substance: EZETIMIBE
  3. OXYCONTIN [Suspect]
     Active Substance: OXYCODONE HYDROCHLORIDE
     Indication: PAIN
     Dosage: 30 MG, BID
     Route: 048
     Dates: start: 2012, end: 20140626
  4. TAHOR [Concomitant]
     Active Substance: ATORVASTATIN CALCIUM
  5. OMIX [Concomitant]
     Active Substance: TAMSULOSIN HYDROCHLORIDE
  6. METFORMINE [Suspect]
     Active Substance: METFORMIN HYDROCHLORIDE
     Indication: TYPE 2 DIABETES MELLITUS
     Dosage: 1 G, TID
     Route: 048
     Dates: end: 20140628
  7. LEVEMIR [Concomitant]
     Active Substance: INSULIN DETEMIR
  8. AUGMENTIN [Suspect]
     Active Substance: AMOXICILLIN\CLAVULANATE POTASSIUM
     Indication: INFECTION
     Dosage: UNK
     Route: 048
     Dates: end: 20140625
  9. PLAVIX [Concomitant]
     Active Substance: CLOPIDOGREL BISULFATE
  10. HUMALOG [Concomitant]
     Active Substance: INSULIN LISPRO
     Dosage: 100 UNK, UNK
  11. BIPRETERAX                         /01421201/ [Concomitant]
     Active Substance: INDAPAMIDE\PERINDOPRIL ERBUMINE

REACTIONS (7)
  - Diarrhoea [Unknown]
  - Confusional state [Unknown]
  - Acute kidney injury [Recovered/Resolved]
  - Hyperkalaemia [Recovered/Resolved]
  - Acidosis [Recovered/Resolved]
  - Dehydration [Unknown]
  - Somnolence [Unknown]

NARRATIVE: CASE EVENT DATE: 20140626
